FAERS Safety Report 21764856 (Version 1)
Quarter: 2022Q4

REPORT INFORMATION
  Report Type: Spontaneous
  Country: PT (occurrence: PT)
  Receive Date: 20221222
  Receipt Date: 20221222
  Transmission Date: 20230112
  Serious: Yes (Other)
  Sender: FDA-Public Use
  Company Number: PT-SUN PHARMACEUTICAL INDUSTRIES LTD-2022R1-369702

PATIENT
  Age: 53 Year
  Sex: Female

DRUGS (3)
  1. SERTRALINE HYDROCHLORIDE [Suspect]
     Active Substance: SERTRALINE HYDROCHLORIDE
     Indication: Pseudodementia
     Dosage: 200 MILLIGRAM
     Route: 065
  2. BUPROPION [Suspect]
     Active Substance: BUPROPION
     Indication: Pseudodementia
     Dosage: 300 MILLIGRAM
     Route: 065
  3. ZOTEPINE [Suspect]
     Active Substance: ZOTEPINE
     Indication: Pseudodementia
     Dosage: 40 MILLIGRAM
     Route: 065

REACTIONS (1)
  - Therapy partial responder [Unknown]
